FAERS Safety Report 18312234 (Version 1)
Quarter: 2020Q3

REPORT INFORMATION
  Report Type: Report from Study
  Country: GB (occurrence: GB)
  Receive Date: 20200925
  Receipt Date: 20200925
  Transmission Date: 20201103
  Serious: Yes (Other)
  Sender: FDA-Public Use
  Company Number: NVSC2020GB258996

PATIENT
  Sex: Female

DRUGS (1)
  1. HYRIMOZ [Suspect]
     Active Substance: ADALIMUMAB-ADAZ
     Indication: RHEUMATOID ARTHRITIS
     Dosage: UNK (40MG/ 0.8 ML, EOW, 04 SEP 2020)
     Route: 058
     Dates: start: 20200901

REACTIONS (3)
  - Contusion [Unknown]
  - Loss of consciousness [Unknown]
  - Pruritus [Recovered/Resolved]
